FAERS Safety Report 18312895 (Version 1)
Quarter: 2020Q3

REPORT INFORMATION
  Report Type: Spontaneous
  Country: FR (occurrence: FR)
  Receive Date: 20200925
  Receipt Date: 20200925
  Transmission Date: 20201103
  Serious: Yes (Other)
  Sender: FDA-Public Use
  Company Number: FR-MYLANLABS-2020M1080786

PATIENT
  Sex: Female
  Weight: 3.23 kg

DRUGS (1)
  1. LAMOTRIGINE. [Suspect]
     Active Substance: LAMOTRIGINE
     Indication: BIPOLAR DISORDER
     Dosage: 150 MILLIGRAM, QD
     Route: 064
     Dates: start: 201901, end: 20191006

REACTIONS (6)
  - Atrial septal defect [Recovered/Resolved]
  - Foetal exposure during pregnancy [Recovered/Resolved]
  - Choroidal coloboma [Not Recovered/Not Resolved]
  - Ventricular septal defect [Recovered/Resolved]
  - Retinal coloboma [Not Recovered/Not Resolved]
  - Iris coloboma [Not Recovered/Not Resolved]

NARRATIVE: CASE EVENT DATE: 201901
